FAERS Safety Report 25254838 (Version 6)
Quarter: 2025Q4

REPORT INFORMATION
  Report Type: Spontaneous
  Country: US (occurrence: US)
  Receive Date: 20250430
  Receipt Date: 20251121
  Transmission Date: 20260118
  Serious: No
  Sender: TRAVERE THERAPEUTICS
  Company Number: US-TRAVERE-2025TVT00480

PATIENT
  Age: 34 Year
  Sex: Male

DRUGS (2)
  1. FILSPARI [Suspect]
     Active Substance: SPARSENTAN
     Indication: IgA nephropathy
     Route: 048
     Dates: start: 20250325
  2. FILSPARI [Suspect]
     Active Substance: SPARSENTAN
     Dosage: LOT NUMBER: 1979026, EXPIRY DATE: 31-AUG-2027
     Route: 048
     Dates: start: 202504

REACTIONS (7)
  - Pollakiuria [Unknown]
  - Faeces discoloured [Unknown]
  - Glomerular filtration rate decreased [None]
  - Blood iron decreased [Unknown]
  - Renal impairment [None]
  - Nephrolithiasis [Unknown]
  - Product administration error [Unknown]
